FAERS Safety Report 4988390-2 (Version None)
Quarter: 2006Q2

REPORT INFORMATION
  Report Type: 
  Country: None (occurrence: None)
  Receive Date: 20060426
  Receipt Date: 20060414
  Transmission Date: 20061013
  Serious: Yes (Congenital Anomaly)
  Sender: FDA-Public Use
  Company Number: 8009186

PATIENT
  Sex: Male
  Weight: 3.7 kg

DRUGS (10)
  1. KEPPRA [Suspect]
     Dosage: 1500 MG/D TRP
     Route: 064
     Dates: start: 20040518, end: 20050216
  2. TEGRETOL [Suspect]
     Indication: EPILEPSY
     Dosage: 1200 MG /D TRP
     Route: 064
     Dates: end: 20050216
  3. FOLIC ACID [Concomitant]
  4. ALLEGRA [Concomitant]
  5. PHENERGAN HCL [Concomitant]
  6. REGLAN [Concomitant]
  7. SCOPOLAMINE PATCH [Concomitant]
  8. PRENATAL VITAMINS [Concomitant]
  9. ZOFRAN [Concomitant]
  10. ACYCLOVIR [Concomitant]

REACTIONS (6)
  - CAESAREAN SECTION [None]
  - DRUG EXPOSURE DURING PREGNANCY [None]
  - FOETAL MOVEMENTS DECREASED [None]
  - HYPOSPADIAS [None]
  - RESUSCITATION [None]
  - TACHYCARDIA FOETAL [None]
